FAERS Safety Report 19727303 (Version 2)
Quarter: 2021Q3

REPORT INFORMATION
  Report Type: Spontaneous
  Country: US (occurrence: US)
  Receive Date: 20210819
  Receipt Date: 20210825
  Transmission Date: 20211014
  Serious: No
  Sender: FDA-Public Use
  Company Number: US-TRIS PHARMA, INC.-21US009721

PATIENT

DRUGS (1)
  1. DYANAVEL XR [Suspect]
     Active Substance: AMPHETAMINE
     Indication: ATTENTION DEFICIT HYPERACTIVITY DISORDER
     Dosage: 3 MILLILITRE, QD
     Route: 048
     Dates: start: 201907, end: 202104

REACTIONS (5)
  - Mobility decreased [Not Recovered/Not Resolved]
  - Off label use [Unknown]
  - Burning sensation [Not Recovered/Not Resolved]
  - Raynaud^s phenomenon [Not Recovered/Not Resolved]
  - Cyanosis [Recovering/Resolving]

NARRATIVE: CASE EVENT DATE: 201907
